FAERS Safety Report 24409218 (Version 1)
Quarter: 2024Q4

REPORT INFORMATION
  Report Type: Spontaneous
  Country: US (occurrence: US)
  Receive Date: 20241008
  Receipt Date: 20241008
  Transmission Date: 20250115
  Serious: Yes (Death, Life-Threatening, Hospitalization, Other)
  Sender: ETON PHARMACEUTICALS
  Company Number: US-ETON PHARMACEUTICALS, INC-2024ETO000265

PATIENT

DRUGS (6)
  1. HYDROCORTISONE [Suspect]
     Active Substance: HYDROCORTISONE
     Indication: Adrenal insufficiency
     Dosage: 20 MILLIGRAM
     Route: 065
  2. HYDROCORTISONE [Suspect]
     Active Substance: HYDROCORTISONE
     Indication: Inappropriate antidiuretic hormone secretion
     Dosage: UNK, STRESS DOSING
     Route: 065
  3. PYRIMETHAMINE [Concomitant]
     Active Substance: PYRIMETHAMINE
     Indication: Product used for unknown indication
  4. ATOVAQUONE [Concomitant]
     Active Substance: ATOVAQUONE
     Indication: Product used for unknown indication
  5. LEUCOVORIN [Concomitant]
     Active Substance: LEUCOVORIN\LEUCOVORIN CALCIUM
     Indication: Product used for unknown indication
  6. FLUCONAZOLE [Concomitant]
     Active Substance: FLUCONAZOLE
     Indication: Oesophageal candidiasis

REACTIONS (4)
  - Kaposi^s sarcoma [Fatal]
  - Disease progression [Fatal]
  - Respiratory failure [Fatal]
  - Off label use [Unknown]
